FAERS Safety Report 17248020 (Version 3)
Quarter: 2020Q1

REPORT INFORMATION
  Report Type: Spontaneous
  Country: US (occurrence: US)
  Receive Date: 20200108
  Receipt Date: 20200204
  Transmission Date: 20200409
  Serious: No
  Sender: FDA-Public Use
  Company Number: US-SA-2020SA001946

PATIENT
  Sex: Male

DRUGS (2)
  1. LANTUS SOLOSTAR [Suspect]
     Active Substance: INSULIN GLARGINE
     Dosage: 70 IU TO 80 IU OF LANTUS PER DAY
     Route: 065
     Dates: start: 20191231
  2. HUMALOG [Concomitant]
     Active Substance: INSULIN LISPRO
     Dosage: 50 IU
     Route: 065

REACTIONS (4)
  - Blood glucose increased [Unknown]
  - Visual impairment [Unknown]
  - Device leakage [Unknown]
  - Incorrect dose administered by device [Unknown]
